FAERS Safety Report 10158846 (Version 1)
Quarter: 2014Q2

REPORT INFORMATION
  Report Type: Spontaneous
  Country: US (occurrence: US)
  Receive Date: 20140508
  Receipt Date: 20140508
  Transmission Date: 20141212
  Serious: No
  Sender: FDA-Public Use
  Company Number: US-BIOGENIDEC-2014BI039036

PATIENT
  Age: 33 Year
  Sex: Female

DRUGS (1)
  1. TECFIDERA [Suspect]
     Indication: MULTIPLE SCLEROSIS
     Route: 048
     Dates: start: 201404

REACTIONS (7)
  - Fatigue [Unknown]
  - Dysphonia [Unknown]
  - Cough [Unknown]
  - Abdominal pain [Unknown]
  - Rash [Unknown]
  - Flushing [Unknown]
  - Diarrhoea [Unknown]
